FAERS Safety Report 18303356 (Version 2)
Quarter: 2022Q3

REPORT INFORMATION
  Report Type: Spontaneous
  Country: DK (occurrence: DK)
  Receive Date: 20200923
  Receipt Date: 20220720
  Transmission Date: 20221026
  Serious: Yes (Life-Threatening, Hospitalization)
  Sender: FDA-Public Use
  Company Number: None

PATIENT
  Age: 76 Year
  Sex: Male

DRUGS (7)
  1. XARELTO [Suspect]
     Active Substance: RIVAROXABAN
     Indication: Thrombosis prophylaxis
     Dosage: STRENGHT: 20 MG
     Route: 048
     Dates: start: 20171109, end: 20200823
  2. XARELTO [Suspect]
     Active Substance: RIVAROXABAN
     Indication: Thrombosis prophylaxis
     Dosage: 20 MG, QD
     Route: 048
     Dates: start: 20200910
  3. SPIRONOLACTONE [Concomitant]
     Active Substance: SPIRONOLACTONE
     Indication: Diuretic therapy
     Dosage: STRENGHT: 15 MG
     Route: 048
     Dates: start: 20171226
  4. METOPROLSUCCINATE TEVA [Concomitant]
     Indication: Heart rate irregular
     Dosage: STRENGHT: 25 MG
     Route: 048
     Dates: start: 20180209
  5. BUMETANIDE [Concomitant]
     Active Substance: BUMETANIDE
     Indication: Diuretic therapy
     Dosage: DOSAGE: 2 +1+1STRENGHT: 1 MG
     Route: 048
     Dates: start: 20180718
  6. KALIUMKLORID ORIFARM [Concomitant]
     Indication: Mineral supplementation
     Dosage: STRENGHT: 750 MG
     Route: 048
     Dates: start: 20180718
  7. MIRTAZAPINE [Concomitant]
     Active Substance: MIRTAZAPINE
     Indication: Depression
     Dosage: STRENGHT: 15 MG
     Route: 048
     Dates: start: 20180104

REACTIONS (5)
  - Haemorrhage intracranial [Recovering/Resolving]
  - Confusional state [Unknown]
  - Dysarthria [Unknown]
  - Hemiparesis [Unknown]
  - Aphasia [Unknown]

NARRATIVE: CASE EVENT DATE: 20200823
